FAERS Safety Report 5522666-5 (Version None)
Quarter: 2007Q4

REPORT INFORMATION
  Report Type: 
  Country: None (occurrence: None)
  Receive Date: 20071120
  Receipt Date: 20071108
  Transmission Date: 20080405
  Serious: Yes (Hospitalization)
  Sender: FDA-Public Use
  Company Number: US-SHR-US-2007-042875

PATIENT
  Age: 42 Year
  Sex: Female

DRUGS (3)
  1. BETASERON [Suspect]
     Indication: RELAPSING-REMITTING MULTIPLE SCLEROSIS
     Dosage: 8 MIU, EVERY 2D
     Route: 058
     Dates: start: 20020805, end: 20070704
  2. BETASERON [Suspect]
     Dosage: 8 MIU, EVERY 2D
     Route: 058
     Dates: start: 20070906
  3. MINOCYCLINE HCL [Concomitant]
     Indication: ROSACEA

REACTIONS (2)
  - HAEMOLYTIC URAEMIC SYNDROME [None]
  - INJECTION SITE PAIN [None]
